FAERS Safety Report 16635715 (Version 3)
Quarter: 2019Q3

REPORT INFORMATION
  Report Type: Spontaneous
  Country: GB (occurrence: GB)
  Receive Date: 20190726
  Receipt Date: 20190918
  Transmission Date: 20191004
  Serious: Yes (Hospitalization, Other)
  Sender: FDA-Public Use
  Company Number: GB-TEVA-2019-GB-1071921

PATIENT
  Sex: Female

DRUGS (2)
  1. ACTIQ [Suspect]
     Active Substance: FENTANYL CITRATE
     Indication: PRODUCT USED FOR UNKNOWN INDICATION
     Dosage: 200 MICROGRAM DAILY;
     Route: 065
  2. EFFENTORA [Suspect]
     Active Substance: FENTANYL CITRATE
     Indication: PRODUCT USED FOR UNKNOWN INDICATION
     Route: 065

REACTIONS (9)
  - Lower respiratory tract infection [Unknown]
  - Dyspnoea [Unknown]
  - Product supply issue [Unknown]
  - Product substitution issue [Unknown]
  - Catheter site infection [Unknown]
  - Malaise [Unknown]
  - Oral pain [Unknown]
  - Hypersomnia [Unknown]
  - Product use in unapproved indication [Unknown]
